FAERS Safety Report 18536400 (Version 3)
Quarter: 2021Q2

REPORT INFORMATION
  Report Type: Spontaneous
  Country: US (occurrence: US)
  Receive Date: 20201123
  Receipt Date: 20210427
  Transmission Date: 20210717
  Serious: No
  Sender: FDA-Public Use
  Company Number: US-PFIZER INC-2020459046

PATIENT
  Age: 49 Year
  Sex: Male

DRUGS (1)
  1. BRAFTOVI [Suspect]
     Active Substance: ENCORAFENIB
     Indication: RECTAL CANCER
     Dosage: 300 MG, DAILY
     Route: 048
     Dates: start: 20201027, end: 20210419

REACTIONS (2)
  - Rash [Unknown]
  - Product dose omission issue [Unknown]
